FAERS Safety Report 5024704-5 (Version None)
Quarter: 2006Q2

REPORT INFORMATION
  Report Type: 
  Country: None (occurrence: None)
  Receive Date: 20060426
  Receipt Date: 20060213
  Transmission Date: 20061013
  Serious: Yes (Other)
  Sender: FDA-Public Use
  Company Number: 2006021518

PATIENT
  Sex: Male
  Weight: 90.7194 kg

DRUGS (20)
  1. LYRICA [Suspect]
     Indication: DIABETIC NEUROPATHY
     Dosage: 50 MG (50 MG, 1 IN 1 D), ORAL
     Route: 048
     Dates: start: 20051101
  2. CROMOLYN SODIUM (CROMOLYN SODIUM) [Concomitant]
  3. LORATADINE [Concomitant]
  4. FUROSEMIDE [Concomitant]
  5. MULTIPLE VITAMINS (ASCORBIC ACID, ERGOCALCIFEROL, FOLIC ACID, RETINOL, [Concomitant]
  6. FOLIC ACID [Concomitant]
  7. CALCIUM (CALCIUM) [Concomitant]
  8. ACETYLSALICYLIC ACID (ACETLYSALICYLIC ACID) [Concomitant]
  9. STOOL SOFTENER (DOCUSATE SODIUM) [Concomitant]
  10. GLYBURIDE [Concomitant]
  11. PROSCAR [Concomitant]
  12. LISINOPRIL [Concomitant]
  13. HYDROCHLOROTHIAZIDE [Concomitant]
  14. SIMVASTATIN [Concomitant]
  15. PAROXETINE [Concomitant]
  16. OMEPRAZOLE [Concomitant]
  17. RANITIDINE [Concomitant]
  18. AZMACORT [Concomitant]
  19. ALBUTEROL [Concomitant]
  20. METFORMIN [Concomitant]

REACTIONS (2)
  - DRUG DOSE OMISSION [None]
  - SWELLING [None]
